FAERS Safety Report 7650383-4 (Version None)
Quarter: 2011Q3

REPORT INFORMATION
  Report Type: 
  Country: None (occurrence: None)
  Receive Date: 20110721
  Receipt Date: 20101215
  Transmission Date: 20111222
  Serious: Yes (Hospitalization)
  Sender: FDA-Public Use
  Company Number: DSU-2010-06982

PATIENT
  Age: 60 Year
  Sex: Female
  Weight: 86.1834 kg

DRUGS (14)
  1. METHOTREXATE (METHOTREXATE) (TABLET) (METHOTREXATE) [Concomitant]
  2. PREDNISONE [Concomitant]
  3. ALLEGRA (FEXOFENADINE) (TABLET) (FEXOFENADINE) [Concomitant]
  4. SULFASALAZINE (SULFASALAZINE) (500 MILLIGRAM, TABLET) (SULFASALAZINE) [Concomitant]
  5. CALCIUM + D (ERGOCALCIFEROL, CALCIUM) (ERGOCALCIFEROL, CALCIUM) [Concomitant]
  6. OMEPRAZOLE [Concomitant]
  7. DIOVAN [Concomitant]
  8. FLEXERIL (CYCLOBENZAPRINE HYDROCHLORIDE) (CYCLOBENZAPRINE HYDROCHLORID [Concomitant]
  9. BYSTOLIC [Concomitant]
  10. VITAMIN D (ERGOCALCIFEROL) (ERGOCALCIFEROL) [Concomitant]
  11. FOSAMAX (ALENDRONATE SODIUM) (TABLET) (ALENDRONATE SODIUM) [Concomitant]
  12. WELCHOL [Suspect]
     Indication: HYPERCHOLESTEROLAEMIA
     Dosage: 3750 MG (1875 MG,BID),PER ORAL
     Route: 048
     Dates: start: 20091222, end: 20101213
  13. FOLIC ACID (FOLIC ACID) (TABLET) (FOLIC ACID) [Concomitant]
  14. OXAPROZIN (OXAPROZIN) (600 MILLIGRAM, TABLET) (OXAPROZIN) [Concomitant]

REACTIONS (1)
  - PANCREATITIS [None]
